FAERS Safety Report 25627258 (Version 1)
Quarter: 2025Q3

REPORT INFORMATION
  Report Type: Spontaneous
  Country: US (occurrence: None)
  Receive Date: 20250730
  Receipt Date: 20250730
  Transmission Date: 20251021
  Serious: Yes (unspecified)
  Sender: FDA-CTU
  Company Number: None

PATIENT
  Age: 45 Year
  Sex: Female
  Weight: 57.6 kg

DRUGS (2)
  1. LEVOFLOXACIN [Suspect]
     Active Substance: LEVOFLOXACIN
     Indication: Sinusitis bacterial
     Dosage: FREQUENCY : DAILY;?
     Route: 048
     Dates: start: 20250411, end: 20250418
  2. AUGMENTIN [Concomitant]
     Active Substance: AMOXICILLIN\CLAVULANATE POTASSIUM

REACTIONS (8)
  - Drug ineffective [None]
  - Musculoskeletal pain [None]
  - Tendon pain [None]
  - Therapy cessation [None]
  - Chest pain [None]
  - Synovial cyst [None]
  - Cartilage injury [None]
  - Tendonitis [None]

NARRATIVE: CASE EVENT DATE: 20250411
